FAERS Safety Report 7136963-3 (Version None)
Quarter: 2010Q4

REPORT INFORMATION
  Report Type: 
  Country: None (occurrence: None)
  Receive Date: 20101119
  Receipt Date: 20101111
  Transmission Date: 20110411
  Serious: Yes (Hospitalization, Other)
  Sender: FDA-Public Use
  Company Number: 2010SP058190

PATIENT
  Age: 70 Year
  Sex: Female

DRUGS (8)
  1. REMERON [Suspect]
     Indication: PRODUCT USED FOR UNKNOWN INDICATION
     Dosage: 15 MG;QD;PO
     Route: 048
  2. TRYPTANOL (AMITRIPTYLINE) [Suspect]
     Indication: PRODUCT USED FOR UNKNOWN INDICATION
     Dosage: 10 MG;PO
     Route: 048
  3. PAXIL [Concomitant]
  4. EURODIN [Concomitant]
  5. LENDORMIN [Concomitant]
  6. RAVONA (PENTOBARBITURATE) [Concomitant]
  7. DOGMATYL [Concomitant]
  8. DIAZEPAM [Concomitant]

REACTIONS (4)
  - BLOOD CREATINE PHOSPHOKINASE INCREASED [None]
  - BLOOD POTASSIUM DECREASED [None]
  - FALL [None]
  - FRACTURE [None]
